FAERS Safety Report 11805574 (Version 1)
Quarter: 2015Q4

REPORT INFORMATION
  Report Type: Report from Study
  Country: US (occurrence: US)
  Receive Date: 20151207
  Receipt Date: 20151207
  Transmission Date: 20160305
  Serious: No
  Sender: FDA-Public Use
  Company Number: US-AMGEN-USASL2015127820

PATIENT
  Age: 2 Year
  Sex: Female

DRUGS (1)
  1. ENBREL [Suspect]
     Active Substance: ETANERCEPT
     Indication: JUVENILE IDIOPATHIC ARTHRITIS
     Dosage: UNK
     Route: 065
     Dates: start: 20150810

REACTIONS (4)
  - Hand-foot-and-mouth disease [Unknown]
  - Nasopharyngitis [Unknown]
  - Joint swelling [Unknown]
  - Joint effusion [Unknown]

NARRATIVE: CASE EVENT DATE: 2015
